FAERS Safety Report 5149836-2 (Version None)
Quarter: 2006Q4

REPORT INFORMATION
  Report Type: 
  Country: None (occurrence: None)
  Receive Date: 20060918
  Receipt Date: 20060407
  Transmission Date: 20070319
  Serious: Yes (Hospitalization)
  Sender: FDA-Public Use
  Company Number: US-JNJFOC-20060304692

PATIENT
  Age: 58 Year
  Sex: Male
  Weight: 95.2554 kg

DRUGS (4)
  1. TOPAMAX [Suspect]
     Indication: CONVULSION
     Dosage: 50 MG, 2 IN 1 DAY, ORAL
     Route: 048
     Dates: start: 20060201, end: 20060209
  2. TOPAMAX [Suspect]
     Indication: MIGRAINE
     Dosage: 50 MG, 2 IN 1 DAY, ORAL
     Route: 048
     Dates: start: 20060201, end: 20060209
  3. DILANTIN [Concomitant]
  4. ZOLOFT [Concomitant]

REACTIONS (2)
  - ANGLE CLOSURE GLAUCOMA [None]
  - HYPERSENSITIVITY [None]
